FAERS Safety Report 16681500 (Version 4)
Quarter: 2025Q4

REPORT INFORMATION
  Report Type: Spontaneous
  Country: EU (occurrence: EU)
  Receive Date: 20190808
  Receipt Date: 20251003
  Transmission Date: 20260117
  Serious: Yes (Other)
  Sender: AUROBINDO
  Company Number: EU-NOVPHSZ-PHHY2019PL168741

PATIENT
  Age: 73 Year
  Sex: Male

DRUGS (4)
  1. ACETAMINOPHEN [Suspect]
     Active Substance: ACETAMINOPHEN
     Indication: Pain
     Dosage: UNK
     Route: 042
  2. FENTANYL [Suspect]
     Active Substance: FENTANYL
     Indication: Pain
     Dosage: 75 MICROGRAM, EVERY HOUR, (UP TO 75 UG, QH (EVERY 72H)
     Route: 062
  3. FENTANYL [Suspect]
     Active Substance: FENTANYL
     Dosage: 400 MICROGRAM, ONCE A DAY, (UP TO 400 UG, QD)
     Route: 045
  4. METAMIZOLE [Suspect]
     Active Substance: METAMIZOLE
     Indication: Pain
     Dosage: UNK
     Route: 042

REACTIONS (4)
  - Pain [Unknown]
  - Drug dependence [Unknown]
  - Suicidal ideation [Unknown]
  - Therapeutic product effect incomplete [Unknown]
